FAERS Safety Report 18117184 (Version 2)
Quarter: 2021Q2

REPORT INFORMATION
  Report Type: Spontaneous
  Country: US (occurrence: US)
  Receive Date: 20200806
  Receipt Date: 20210519
  Transmission Date: 20210717
  Serious: No
  Sender: FDA-Public Use
  Company Number: US-SA-2020SA203078

PATIENT
  Age: 59 Year
  Sex: Male

DRUGS (1)
  1. DUPIXENT [Suspect]
     Active Substance: DUPILUMAB
     Indication: ASTHMA
     Dosage: 300 MG, QOW
     Route: 058
     Dates: start: 20190601

REACTIONS (4)
  - Product use issue [Unknown]
  - Arthralgia [Unknown]
  - Eyelid rash [Unknown]
  - Tendon pain [Unknown]

NARRATIVE: CASE EVENT DATE: 20190601
